FAERS Safety Report 7509667-2 (Version None)
Quarter: 2011Q2

REPORT INFORMATION
  Report Type: 
  Country: None (occurrence: None)
  Receive Date: 20110527
  Receipt Date: 20110516
  Transmission Date: 20111010
  Serious: Yes (Death, Hospitalization, Other)
  Sender: FDA-Public Use
  Company Number: GB-BRISTOL-MYERS SQUIBB COMPANY-15681943

PATIENT
  Age: 55 Year
  Sex: Male

DRUGS (11)
  1. VINCRISTINE SULFATE [Suspect]
     Indication: BURKITT'S LYMPHOMA
  2. ETOPOSIDE [Suspect]
     Indication: BURKITT'S LYMPHOMA
  3. MESNA [Suspect]
     Indication: BURKITT'S LYMPHOMA
  4. IFOSFAMIDE [Suspect]
     Indication: BURKITT'S LYMPHOMA
  5. CYTARABINE [Suspect]
     Indication: BURKITT'S LYMPHOMA
     Route: 037
  6. TENOFOVIR DISOPROXIL FUMARATE [Suspect]
  7. DOXORUBICIN HCL [Suspect]
     Indication: BURKITT'S LYMPHOMA
  8. EFAVIRENZ [Suspect]
  9. EMTRICITABINE [Suspect]
  10. CYCLOPHOSPHAMIDE [Suspect]
     Indication: BURKITT'S LYMPHOMA
  11. METHOTREXATE SODIUM [Suspect]
     Indication: BURKITT'S LYMPHOMA

REACTIONS (2)
  - TOXICITY TO VARIOUS AGENTS [None]
  - BURKITT'S LYMPHOMA [None]
